FAERS Safety Report 10220397 (Version 2)
Quarter: 2014Q3

REPORT INFORMATION
  Report Type: Report from Study
  Country: US (occurrence: US)
  Receive Date: 20140606
  Receipt Date: 20140715
  Transmission Date: 20150326
  Serious: Yes (Hospitalization)
  Sender: FDA-Public Use
  Company Number: US-BIOGENIDEC-2014BI053037

PATIENT
  Sex: Male

DRUGS (1)
  1. TYSABRI [Suspect]
     Active Substance: NATALIZUMAB
     Indication: MULTIPLE SCLEROSIS
     Route: 042
     Dates: start: 20121201

REACTIONS (13)
  - Syncope [Not Recovered/Not Resolved]
  - Urinary incontinence [Not Recovered/Not Resolved]
  - Depression [Not Recovered/Not Resolved]
  - Ataxia [Not Recovered/Not Resolved]
  - Anxiety [Recovered/Resolved]
  - Intentional self-injury [Not Recovered/Not Resolved]
  - Gait disturbance [Recovered/Resolved with Sequelae]
  - Fall [Recovered/Resolved]
  - Skull fracture [Not Recovered/Not Resolved]
  - Suicide attempt [Not Recovered/Not Resolved]
  - Headache [Recovered/Resolved]
  - Alcoholism [Not Recovered/Not Resolved]
  - Crying [Recovered/Resolved with Sequelae]

NARRATIVE: CASE EVENT DATE: 2013
